FAERS Safety Report 7986697-8 (Version None)
Quarter: 2011Q4

REPORT INFORMATION
  Report Type: 
  Country: None (occurrence: None)
  Receive Date: 20111216
  Receipt Date: 20110812
  Transmission Date: 20120403
  Serious: No
  Sender: FDA-Public Use
  Company Number: US-BRISTOL-MYERS SQUIBB COMPANY-15968712

PATIENT
  Age: 12 Year
  Sex: Male

DRUGS (5)
  1. LEXAPRO [Concomitant]
  2. ABILIFY [Suspect]
     Dosage: DOSE REDUCED TO 2MG AND 2.5MG
  3. CYPROHEPTADINE HCL [Concomitant]
  4. FOCALIN [Concomitant]
  5. GUANFACINE HYDROCHLORIDE [Concomitant]

REACTIONS (1)
  - TRISMUS [None]
